FAERS Safety Report 5418973-7 (Version None)
Quarter: 2007Q3

REPORT INFORMATION
  Report Type: 
  Country: None (occurrence: None)
  Receive Date: 20070817
  Receipt Date: 20070806
  Transmission Date: 20080115
  Serious: Yes (Other)
  Sender: FDA-Public Use
  Company Number: US-PFIZER INC-2007066265

PATIENT
  Sex: Male

DRUGS (4)
  1. LYRICA [Suspect]
     Indication: CONVULSION
  2. TAMSULOSIN HCL [Interacting]
  3. NEURONTIN [Concomitant]
  4. METFORMIN HCL [Concomitant]

REACTIONS (2)
  - CONVULSION [None]
  - DRUG INTERACTION [None]
